FAERS Safety Report 8906186 (Version 1)
Quarter: 2012Q4

REPORT INFORMATION
  Report Type: Spontaneous
  Country: US (occurrence: None)
  Receive Date: 20121112
  Receipt Date: 20121112
  Transmission Date: 20130627
  Serious: No
  Sender: FDA-Public Use
  Company Number: None

PATIENT
  Age: 54 Year
  Sex: Male
  Weight: 65.32 kg

DRUGS (1)
  1. HALDOL [Suspect]
     Indication: AGITATION
     Route: 030
     Dates: start: 20121013

REACTIONS (1)
  - Abscess [None]
